FAERS Safety Report 8563525 (Version 4)
Quarter: 2013Q1

REPORT INFORMATION
  Report Type: Spontaneous
  Country: US (occurrence: US)
  Receive Date: 20120515
  Receipt Date: 20130131
  Transmission Date: 20140127
  Serious: Yes (Hospitalization)
  Sender: FDA-Public Use
  Company Number: US-GLAXOSMITHKLINE-A0933116A

PATIENT
  Age: 47 Year
  Sex: Male

DRUGS (9)
  1. AVANDIA [Suspect]
     Indication: DIABETES MELLITUS
     Dosage: 8MG PER DAY
     Route: 048
     Dates: start: 20050706, end: 20050901
  2. AVANDAMET [Suspect]
     Indication: DIABETES MELLITUS
     Route: 048
     Dates: start: 20050902, end: 20060112
  3. LISINOPRIL [Concomitant]
  4. LOPRESSOR [Concomitant]
  5. TOPROL [Concomitant]
  6. LIPITOR [Concomitant]
  7. PLAVIX [Concomitant]
  8. ASA [Concomitant]
  9. METFORMIN [Concomitant]

REACTIONS (2)
  - Myocardial infarction [Recovering/Resolving]
  - Cardiac failure congestive [Unknown]
